FAERS Safety Report 11418964 (Version 2)
Quarter: 2017Q2

REPORT INFORMATION
  Report Type: Report from Study
  Country: JP (occurrence: JP)
  Receive Date: 20150826
  Receipt Date: 20170623
  Transmission Date: 20170829
  Serious: Yes (Hospitalization)
  Sender: FDA-Public Use
  Company Number: JP-ROCHE-1625844

PATIENT
  Age: 70 Year
  Sex: Male

DRUGS (22)
  1. SIGMART [Concomitant]
     Active Substance: NICORANDIL
     Dosage: DOSAGE IS UNCERTAIN.
     Route: 065
  2. NORVASC [Concomitant]
     Active Substance: AMLODIPINE BESYLATE
     Dosage: DOSAGE IS UNCERTAIN.
     Route: 065
  3. BAYASPIRIN [Concomitant]
     Active Substance: ASPIRIN
     Dosage: DOSAGE IS UNCERTAIN.
     Route: 065
  4. ADALAT [Concomitant]
     Active Substance: NIFEDIPINE
     Dosage: DOSAGE IS UNCERTAIN.
     Route: 065
  5. OXAROL [Concomitant]
     Active Substance: MAXACALCITOL
     Dosage: DOSAGE IS UNCERTAIN.
     Route: 065
  6. PARIET [Concomitant]
     Active Substance: RABEPRAZOLE SODIUM
     Dosage: DOSAGE IS UNCERTAIN.
     Route: 065
  7. FOSRENOL [Concomitant]
     Active Substance: LANTHANUM CARBONATE
     Dosage: DOSAGE IS UNCERTAIN.
     Route: 065
  8. DIOVAN [Concomitant]
     Active Substance: VALSARTAN
     Dosage: DOSAGE IS UNCERTAIN.
     Route: 065
  9. CALTAN [Concomitant]
     Active Substance: CALCIUM CARBONATE
     Dosage: DOSAGE IS UNCERTAIN.
     Route: 065
  10. KAYEXALATE [Concomitant]
     Active Substance: SODIUM POLYSTYRENE SULFONATE
     Dosage: DOSAGE IS UNCERTAIN.
     Route: 065
  11. MOHRUS TAPE [Concomitant]
     Active Substance: KETOPROFEN
     Dosage: DOSAGE IS UNCERTAIN.
     Route: 003
  12. LOXONIN [Concomitant]
     Active Substance: LOXOPROFEN SODIUM
     Dosage: DOSAGE IS UNCERTAIN.
     Route: 003
  13. ALOSENN [Concomitant]
     Active Substance: SENNA LEAF
     Dosage: DOSAGE IS UNCERTAIN.
     Route: 065
  14. GLAKAY [Concomitant]
     Active Substance: MENATETRENONE
     Dosage: DOSAGE IS UNCERTAIN.
     Route: 065
  15. SANCOBA [Concomitant]
     Active Substance: CYANOCOBALAMIN
     Dosage: DOSAGE IS UNCERTAIN.
     Route: 065
  16. TRAZENTA [Concomitant]
     Active Substance: LINAGLIPTIN
     Dosage: DOSAGE IS UNCERTAIN.
     Route: 065
  17. HUMALOG MIX [Concomitant]
     Active Substance: INSULIN LISPRO
     Dosage: DOSAGE IS UNCERTAIN.
     Route: 065
  18. REGPARA [Concomitant]
     Active Substance: CINACALCET HYDROCHLORIDE
     Dosage: DOSAGE IS UNCERTAIN.
     Route: 065
  19. ARTIST [Concomitant]
     Active Substance: CARVEDILOL
     Route: 065
  20. DOXAZOSIN [Concomitant]
     Active Substance: DOXAZOSIN\DOXAZOSIN MESYLATE
     Dosage: DOSAGE IS UNCERTAIN.
     Route: 065
  21. METHOXY POLYETHYLENE GLYCOL-EPOETIN BETA [Suspect]
     Active Substance: METHOXY POLYETHYLENE GLYCOL-EPOETIN BETA
     Indication: NEPHROGENIC ANAEMIA
     Route: 042
     Dates: start: 20140107, end: 20150910
  22. URSO [Concomitant]
     Active Substance: URSODIOL
     Dosage: DOSAGE IS UNCERTAIN.
     Route: 065

REACTIONS (3)
  - Pneumonia [Recovering/Resolving]
  - Vasodilatation [Recovering/Resolving]
  - Acute myocardial infarction [Recovering/Resolving]

NARRATIVE: CASE EVENT DATE: 20140125
